FAERS Safety Report 6941473-X (Version None)
Quarter: 2010Q3

REPORT INFORMATION
  Report Type: 
  Country: None (occurrence: None)
  Receive Date: 20100825
  Receipt Date: 20100811
  Transmission Date: 20110219
  Serious: No
  Sender: FDA-Public Use
  Company Number: US-B.I. PHARMACEUTICALS,INC./RIDGEFIELD-2010-BP-08355BP

PATIENT
  Age: 72 Year
  Sex: Female

DRUGS (6)
  1. CATAPRES [Suspect]
     Indication: HYPERTENSION
     Dosage: 0.9 MG
     Route: 048
     Dates: start: 19850101
  2. IMDUR XR [Concomitant]
     Indication: HYPERTENSION
     Dosage: 300 MG
     Route: 048
  3. NORVASC [Concomitant]
     Indication: HYPERTENSION
     Dosage: 5 MG
     Route: 048
  4. TENORMIN [Concomitant]
     Indication: HYPERTENSION
     Dosage: 50 MG
     Route: 048
  5. ZETIA [Concomitant]
     Indication: BLOOD CHOLESTEROL INCREASED
     Route: 048
  6. ZETIA [Concomitant]
     Indication: INSOMNIA
     Route: 048

REACTIONS (2)
  - BLOOD PRESSURE INADEQUATELY CONTROLLED [None]
  - HYPERTENSION [None]
